FAERS Safety Report 6289628-4 (Version None)
Quarter: 2009Q3

REPORT INFORMATION
  Report Type: 
  Country: None (occurrence: None)
  Receive Date: 20090730
  Receipt Date: 19950706
  Transmission Date: 20100115
  Serious: No
  Sender: FDA-Public Use
  Company Number: COU950631

PATIENT
  Sex: Female

DRUGS (1)
  1. COUMADIN [Suspect]
     Indication: ADVERSE EVENT
     Dosage: NOT APPLICABLE NOT APPLICABLE
     Route: 050

REACTIONS (1)
  - INTRA-UTERINE DEATH [None]
